FAERS Safety Report 14964069 (Version 2)
Quarter: 2018Q2

REPORT INFORMATION
  Report Type: Spontaneous
  Country: ES (occurrence: ES)
  Receive Date: 20180601
  Receipt Date: 20180612
  Transmission Date: 20180711
  Serious: Yes (Other)
  Sender: FDA-Public Use
  Company Number: ES-EXELIXIS-CABO-18014241

PATIENT
  Age: 47 Year
  Sex: Female
  Weight: 78 kg

DRUGS (9)
  1. ROCALTROL [Concomitant]
     Active Substance: CALCITRIOL
     Route: 048
  2. SOMAVERT [Concomitant]
     Active Substance: PEGVISOMANT
     Route: 058
  3. CALCIUM-SANDOZ [Concomitant]
     Active Substance: CALCIUM
     Route: 048
  4. CABOMETYX [Suspect]
     Active Substance: CABOZANTINIB S-MALATE
     Indication: MEDULLARY THYROID CANCER
     Dosage: 40 MG, UNK
     Route: 048
     Dates: start: 20171024, end: 20180326
  5. AMLODIPINE [Concomitant]
     Active Substance: AMLODIPINE BESYLATE
     Route: 048
  6. EUTIROX [Concomitant]
     Active Substance: LEVOTHYROXINE SODIUM
     Route: 048
  7. NOCTAMID [Concomitant]
     Active Substance: LORMETAZEPAM
     Route: 048
  8. MAGNOGENE [Concomitant]
     Route: 048
  9. DOXAZOSIN [Concomitant]
     Active Substance: DOXAZOSIN\DOXAZOSIN MESYLATE
     Route: 048

REACTIONS (3)
  - Diarrhoea [Recovered/Resolved]
  - Off label use [Unknown]
  - Panniculitis [Recovered/Resolved]

NARRATIVE: CASE EVENT DATE: 201803
